FAERS Safety Report 21891594 (Version 1)
Quarter: 2023Q1

REPORT INFORMATION
  Report Type: Report from Study
  Country: IT (occurrence: IT)
  Receive Date: 20230120
  Receipt Date: 20230120
  Transmission Date: 20230418
  Serious: Yes (Other)
  Sender: FDA-Public Use
  Company Number: IT-002147023-NVSC2020IT263332

PATIENT
  Age: 44 Year
  Sex: Female

DRUGS (3)
  1. RYDAPT [Suspect]
     Active Substance: MIDOSTAURIN
     Indication: Mastocytosis
     Dosage: 100 MG, QD
     Route: 065
     Dates: start: 201812
  2. RYDAPT [Suspect]
     Active Substance: MIDOSTAURIN
     Dosage: 25 MG, BID
     Route: 065
  3. ONDANSETRON [Concomitant]
     Active Substance: ONDANSETRON
     Indication: Product used for unknown indication
     Dosage: UNK
     Route: 065

REACTIONS (5)
  - Nausea [Recovered/Resolved]
  - Vomiting [Recovered/Resolved]
  - Diarrhoea [Recovered/Resolved]
  - Tryptase increased [Unknown]
  - Prescribed underdose [Unknown]

NARRATIVE: CASE EVENT DATE: 20181201
